FAERS Safety Report 6409202-6 (Version None)
Quarter: 2009Q4

REPORT INFORMATION
  Report Type: 
  Country: None (occurrence: None)
  Receive Date: 20091021
  Receipt Date: 20091015
  Transmission Date: 20100525
  Serious: Yes (Hospitalization, Other)
  Sender: FDA-Public Use
  Company Number: PHEH2009US14071

PATIENT
  Sex: Male

DRUGS (7)
  1. MYFORTIC [Suspect]
     Dosage: UNK, UNK
  2. PROGRAF [Suspect]
     Dosage: UNK, UNK
  3. NIFEDIPINE [Concomitant]
     Dosage: UNK, UNK
  4. CRESTOR [Concomitant]
     Dosage: UNK, UNK
  5. PREDNISONE [Concomitant]
     Dosage: UNK, UNK
  6. STARLIX [Concomitant]
     Dosage: UNK, UNK
  7. ASPIRIN [Concomitant]
     Dosage: UNK, UNK

REACTIONS (9)
  - ABDOMINAL PAIN UPPER [None]
  - ASTHENIA [None]
  - BACK PAIN [None]
  - BEDRIDDEN [None]
  - CARDIAC FAILURE CONGESTIVE [None]
  - HAEMOGLOBIN DECREASED [None]
  - HEADACHE [None]
  - LETHARGY [None]
  - MUSCULOSKELETAL CHEST PAIN [None]
